FAERS Safety Report 17733861 (Version 1)
Quarter: 2020Q2

REPORT INFORMATION
  Report Type: Spontaneous
  Country: US (occurrence: US)
  Receive Date: 20200501
  Receipt Date: 20200501
  Transmission Date: 20200714
  Serious: Yes (Disabling)
  Sender: FDA-Public Use
  Company Number: None

PATIENT
  Age: 31 Year
  Sex: Female
  Weight: 71.1 kg

DRUGS (8)
  1. TOPAMAX 75MG [Concomitant]
  2. DOCUSATE SODIUM 200MG [Concomitant]
  3. TIROSINT [Concomitant]
     Active Substance: LEVOTHYROXINE SODIUM
  4. MIBELAS 24 FE [Concomitant]
     Active Substance: ETHINYL ESTRADIOL\NORETHINDRONE ACETATE
  5. SIMVASTATIN. [Concomitant]
     Active Substance: SIMVASTATIN
  6. PICATO [Suspect]
     Active Substance: INGENOL MEBUTATE
     Indication: PROPHYLACTIC CHEMOTHERAPY
     Route: 061
     Dates: start: 20200409, end: 20200410
  7. DEXILANT [Concomitant]
     Active Substance: DEXLANSOPRAZOLE
  8. ZYRTEC [Concomitant]
     Active Substance: CETIRIZINE HYDROCHLORIDE

REACTIONS (2)
  - Nausea [None]
  - Vomiting [None]

NARRATIVE: CASE EVENT DATE: 20200411
